FAERS Safety Report 12769977 (Version 1)
Quarter: 2016Q3

REPORT INFORMATION
  Report Type: Report from Study
  Country: CN (occurrence: CN)
  Receive Date: 20160922
  Receipt Date: 20160922
  Transmission Date: 20161109
  Serious: Yes (Death, Other)
  Sender: FDA-Public Use
  Company Number: CN-ROCHE-1832547

PATIENT

DRUGS (2)
  1. ALTEPLASE [Suspect]
     Active Substance: ALTEPLASE
     Dosage: REST 90 % DOSE LASTING ONE HOUR
     Route: 042
  2. ALTEPLASE [Suspect]
     Active Substance: ALTEPLASE
     Indication: ISCHAEMIC STROKE
     Dosage: 10 % DOSE IN 1 MINUTE
     Route: 040

REACTIONS (3)
  - Gingival bleeding [Unknown]
  - Gastrointestinal haemorrhage [Unknown]
  - Death [Fatal]
